FAERS Safety Report 9922140 (Version 1)
Quarter: 2014Q1

REPORT INFORMATION
  Report Type: Report from Study
  Country: US (occurrence: US)
  Receive Date: 20140225
  Receipt Date: 20140225
  Transmission Date: 20141002
  Serious: Yes (Death)
  Sender: FDA-Public Use
  Company Number: US-SA-2014SA023196

PATIENT
  Sex: 0

DRUGS (8)
  1. OXALIPLATIN [Suspect]
     Indication: COLORECTAL CANCER METASTATIC
     Dosage: ON DAY 1
     Route: 042
  2. OXALIPLATIN [Suspect]
     Indication: COLORECTAL CANCER METASTATIC
     Dosage: ON DAY 1
     Route: 042
  3. CAPECITABINE [Suspect]
     Indication: COLORECTAL CANCER METASTATIC
     Dosage: DAYS 1-14
     Route: 048
  4. CAPECITABINE [Suspect]
     Indication: COLORECTAL CANCER METASTATIC
     Dosage: DAYS 1-14
     Route: 048
  5. BEVACIZUMAB [Suspect]
     Indication: COLORECTAL CANCER METASTATIC
     Dosage: ON DAY 1
     Route: 042
  6. BEVACIZUMAB [Suspect]
     Indication: COLORECTAL CANCER METASTATIC
     Dosage: ON DAY 1
     Route: 042
  7. DASATINIB [Suspect]
     Indication: COLORECTAL CANCER METASTATIC
     Dosage: DAYS 1-21
     Route: 048
  8. DASATINIB [Suspect]
     Indication: COLORECTAL CANCER METASTATIC
     Dosage: DAYS 1-21
     Route: 048

REACTIONS (1)
  - Gastrointestinal perforation [Fatal]
